FAERS Safety Report 5789234-1 (Version None)
Quarter: 2008Q2

REPORT INFORMATION
  Report Type: 
  Country: None (occurrence: None)
  Receive Date: 20080626
  Receipt Date: 20080212
  Transmission Date: 20081010
  Serious: No
  Sender: FDA-Public Use
  Company Number: US-ASTRAZENECA-2008UW02965

PATIENT

DRUGS (2)
  1. PULMICORT RESPULES [Suspect]
     Route: 055
  2. ATROVENT [Concomitant]

REACTIONS (2)
  - ANXIETY [None]
  - TRICHOTILLOMANIA [None]
